FAERS Safety Report 15013490 (Version 1)
Quarter: 2018Q2

REPORT INFORMATION
  Report Type: Spontaneous
  Country: US (occurrence: US)
  Receive Date: 20180614
  Receipt Date: 20180614
  Transmission Date: 20180711
  Serious: Yes (Life-Threatening, Other)
  Sender: FDA-Public Use
  Company Number: US-LA JOLLA PHARMACEUTICAL COMPANY-0000250

PATIENT
  Sex: Male

DRUGS (3)
  1. GIAPREZA [Suspect]
     Active Substance: ANGIOTENSIN II
     Indication: SEPSIS
     Dosage: 40 NG, UNK
     Dates: start: 20180528
  2. VASOPRESSIN. [Concomitant]
     Active Substance: VASOPRESSIN
  3. LEVOPHED [Concomitant]
     Active Substance: NOREPINEPHRINE BITARTRATE

REACTIONS (2)
  - Cardio-respiratory arrest [Recovering/Resolving]
  - Livedo reticularis [Recovering/Resolving]

NARRATIVE: CASE EVENT DATE: 20180528
